FAERS Safety Report 5797998-6 (Version None)
Quarter: 2008Q3

REPORT INFORMATION
  Report Type: 
  Country: None (occurrence: None)
  Receive Date: 20080702
  Receipt Date: 20050512
  Transmission Date: 20090109
  Serious: Yes (Hospitalization)
  Sender: FDA-Public Use
  Company Number: B0147523A

PATIENT
  Age: 45 Year
  Sex: Male
  Weight: 72 kg

DRUGS (4)
  1. HALOFANTRINE [Suspect]
     Indication: MALARIA
     Dosage: 500MG TWELVE TIMES PER DAY
     Route: 048
     Dates: start: 19900401, end: 19900402
  2. CHLOROQUINE PHOSPHATE [Concomitant]
     Dosage: 100MG PER DAY
     Route: 065
  3. ACEBUTOLOL [Concomitant]
     Dosage: 400MG PER DAY
     Route: 065
  4. ACETAMINOPHEN [Concomitant]
     Indication: HEADACHE
     Dosage: 2CAP UNKNOWN

REACTIONS (14)
  - ANAPHYLACTIC SHOCK [None]
  - CIRCULATORY COLLAPSE [None]
  - DEPRESSED LEVEL OF CONSCIOUSNESS [None]
  - HYPERSENSITIVITY [None]
  - IRRITABILITY [None]
  - LARYNGEAL DYSPNOEA [None]
  - MALAISE [None]
  - PERIPHERAL COLDNESS [None]
  - PRESYNCOPE [None]
  - PRURITUS [None]
  - PULSE ABSENT [None]
  - SHOCK [None]
  - TACHYCARDIA [None]
  - URTICARIA [None]
